FAERS Safety Report 13796228 (Version 2)
Quarter: 2017Q3

REPORT INFORMATION
  Report Type: Spontaneous
  Country: BR (occurrence: BR)
  Receive Date: 20170726
  Receipt Date: 20170809
  Transmission Date: 20171127
  Serious: Yes (Hospitalization)
  Sender: FDA-Public Use
  Company Number: BR-ELI_LILLY_AND_COMPANY-BR201706003400

PATIENT
  Age: 70 Year
  Sex: Female

DRUGS (1)
  1. FORTEO [Suspect]
     Active Substance: TERIPARATIDE
     Indication: PRODUCT USED FOR UNKNOWN INDICATION
     Dosage: UNK, UNKNOWN
     Route: 065
     Dates: start: 201508

REACTIONS (6)
  - Spinal disorder [Unknown]
  - Limb discomfort [Recovered/Resolved]
  - Hypoacusis [Not Recovered/Not Resolved]
  - Gastrointestinal disorder [Unknown]
  - Vomiting [Recovered/Resolved]
  - Sciatica [Unknown]
